FAERS Safety Report 4709584-7 (Version None)
Quarter: 2005Q3

REPORT INFORMATION
  Report Type: 
  Country: None (occurrence: None)
  Receive Date: 20050706
  Receipt Date: 20050706
  Transmission Date: 20060218
  Serious: Yes (Life-Threatening, Hospitalization)
  Sender: FDA-Public Use
  Company Number: None

PATIENT
  Age: 68 Year
  Sex: Male
  Weight: 60.3284 kg

DRUGS (20)
  1. CISPLATIN [Suspect]
     Indication: EPIGLOTTIC CARCINOMA
     Dosage: 175MG   EVERY 3 WEEKS   INTRAVENOU
     Route: 042
     Dates: start: 20050418, end: 20050516
  2. CISPLATIN [Suspect]
     Indication: SQUAMOUS CELL CARCINOMA
     Dosage: 175MG   EVERY 3 WEEKS   INTRAVENOU
     Route: 042
     Dates: start: 20050418, end: 20050516
  3. ALBUTEROL [Concomitant]
  4. ASPIRIN [Concomitant]
  5. LORAZEPAM [Concomitant]
  6. DIPHENHYDRAMINE HCL [Concomitant]
  7. CEPHALEXIN [Concomitant]
  8. METHOCARBAMOL [Concomitant]
  9. PROCHLORPERAZINE MALEATE [Concomitant]
  10. MAGNESIUM OXIDE [Concomitant]
  11. DEXAMETHASONE [Concomitant]
  12. FENTANYL [Concomitant]
  13. ONDANSETRON HCL [Concomitant]
  14. CALCIUM CARBONATE [Concomitant]
  15. OXYCODONE HCL [Concomitant]
  16. OMEPRAZOLE [Concomitant]
  17. TAMSULOSIN HCL [Concomitant]
  18. ADALAT CC [Concomitant]
  19. DIPHENHYDRAMINE HCL [Concomitant]
  20. FILGRASTIM [Concomitant]

REACTIONS (4)
  - ELECTROLYTE IMBALANCE [None]
  - NAUSEA [None]
  - NEPHROPATHY TOXIC [None]
  - VOMITING [None]
